FAERS Safety Report 16405572 (Version 1)
Quarter: 2019Q2

REPORT INFORMATION
  Report Type: Report from Study
  Country: US (occurrence: US)
  Receive Date: 20190607
  Receipt Date: 20190607
  Transmission Date: 20190711
  Serious: Yes (Life-Threatening, Hospitalization)
  Sender: FDA-Public Use
  Company Number: US-TEVA-2019-US-1059996

PATIENT
  Age: 18 Year
  Sex: Female
  Weight: 115.1 kg

DRUGS (14)
  1. CYTARABINE HYDROCHLORIDE 100MG/5ML SDV + 500MG/10ML SDV [Suspect]
     Active Substance: CYTARABINE HYDROCHLORIDE
     Route: 042
     Dates: start: 20170320
  2. VINCRISTINE [Suspect]
     Active Substance: VINCRISTINE
     Indication: CHEMOTHERAPY
     Dosage: 1.5 M/M2
     Route: 042
     Dates: start: 20170227
  3. MERCAPTOPURINE. [Suspect]
     Active Substance: MERCAPTOPURINE
     Dosage: 625 MILLIGRAM DAILY;
     Route: 048
     Dates: start: 20170320
  4. CYTARABINE HYDROCHLORIDE 100MG/5ML SDV + 500MG/10ML SDV [Suspect]
     Active Substance: CYTARABINE HYDROCHLORIDE
     Route: 037
     Dates: start: 20170101
  5. PEG-ASPARGINASE [Suspect]
     Active Substance: PEGASPARGASE
     Indication: CHEMOTHERAPY
     Dosage: 2500 IU/M2
     Route: 042
     Dates: start: 20170104, end: 20170104
  6. RUXOLITINIB [Suspect]
     Active Substance: RUXOLITINIB
     Indication: ACUTE LYMPHOCYTIC LEUKAEMIA
     Dosage: 80 MILLIGRAM DAILY; LAST DOSE OF RUXOLILINIB PRIOR TO EVENTS WAS TAKEN ON 23-FEB-2017
     Route: 048
  7. CYTARABINE HYDROCHLORIDE 100MG/5ML SDV + 500MG/10ML SDV [Suspect]
     Active Substance: CYTARABINE HYDROCHLORIDE
     Dosage: LAST DOSE OF RUXOLILINIB PRIOR TO EVENTS WAS TAKEN ON 27-MAR-2017
     Route: 037
     Dates: start: 20170101
  8. PEG-ASPARGINASE [Suspect]
     Active Substance: PEGASPARGASE
     Dosage: 2500 IU/M2
     Route: 042
     Dates: start: 20170306, end: 20170306
  9. METHOTREXATE. [Suspect]
     Active Substance: METHOTREXATE
     Dosage: LAST DOSE OF RUXOLILINIB PRIOR TO EVENTS WAS TAKEN ON 06-MAR-2017
     Dates: start: 20170210
  10. METHOTREXATE. [Suspect]
     Active Substance: METHOTREXATE
     Indication: CHEMOTHERAPY
     Dosage: LAST DOSE OF RUXOLILINIB PRIOR TO EVENTS WAS TAKEN ON 06-MAR-2017
     Dates: start: 20170109
  11. CYTARABINE HYDROCHLORIDE 100MG/5ML SDV + 500MG/10ML SDV [Suspect]
     Active Substance: CYTARABINE HYDROCHLORIDE
     Route: 042
     Dates: start: 20170210
  12. CYCLOPHOSPHAMIDE. [Suspect]
     Active Substance: CYCLOPHOSPHAMIDE
     Indication: CHEMOTHERAPY
     Dosage: LAST DOSE OF RUXOLILINIB PRIOR TO EVENTS WAS TAKEN ON 20-MAR-2017
     Route: 042
     Dates: start: 20170210
  13. CYCLOPHOSPHAMIDE. [Suspect]
     Active Substance: CYCLOPHOSPHAMIDE
     Dosage: LAST DOSE OF RUXOLILINIB PRIOR TO EVENTS WAS TAKEN ON 20-MAR-2017
     Route: 042
     Dates: start: 20170320
  14. MERCAPTOPURINE. [Suspect]
     Active Substance: MERCAPTOPURINE
     Indication: CHEMOTHERAPY
     Route: 048
     Dates: start: 20170210

REACTIONS (3)
  - Febrile neutropenia [Recovered/Resolved]
  - Anaphylactic reaction [Recovered/Resolved]
  - Vascular access complication [Recovered/Resolved]
